FAERS Safety Report 22283367 (Version 1)
Quarter: 2023Q2

REPORT INFORMATION
  Report Type: Spontaneous
  Country: US (occurrence: US)
  Receive Date: 20230504
  Receipt Date: 20230504
  Transmission Date: 20230722
  Serious: No
  Sender: FDA-Public Use
  Company Number: US-SA-SAC20230503000300

PATIENT

DRUGS (1)
  1. ELITEK [Suspect]
     Active Substance: RASBURICASE
     Dosage: 4.5 MG SODIUM CHLORIDE 0.9% 50 ML
     Route: 065
     Dates: start: 20221223, end: 20221223

REACTIONS (1)
  - Off label use [Unknown]
